FAERS Safety Report 6540205-7 (Version None)
Quarter: 2010Q1

REPORT INFORMATION
  Report Type: 
  Country: None (occurrence: None)
  Receive Date: 20100115
  Receipt Date: 20100113
  Transmission Date: 20100710
  Serious: Yes (Other)
  Sender: FDA-Public Use
  Company Number: GB-WATSON-2010-00329

PATIENT
  Age: 82 Year
  Sex: Male

DRUGS (1)
  1. PRAZOSIN (WATSON LABORATORIES) [Suspect]
     Indication: HYPERTENSION
     Route: 048

REACTIONS (1)
  - FLOPPY IRIS SYNDROME [None]
